FAERS Safety Report 21616374 (Version 1)
Quarter: 2022Q4

REPORT INFORMATION
  Report Type: Spontaneous
  Country: US (occurrence: None)
  Receive Date: 20221117
  Receipt Date: 20221117
  Transmission Date: 20230113
  Serious: No
  Sender: FDA-Public Use
  Company Number: None

PATIENT
  Age: 76 Year
  Sex: Male

DRUGS (1)
  1. PRALUENT [Suspect]
     Active Substance: ALIROCUMAB
     Dosage: OTHER FREQUENCY : UNKNOWN;?
     Route: 058
     Dates: start: 201711

REACTIONS (2)
  - Cellulitis [None]
  - Pathogen resistance [None]

NARRATIVE: CASE EVENT DATE: 20221117
